FAERS Safety Report 19877391 (Version 1)
Quarter: 2021Q3

REPORT INFORMATION
  Report Type: Spontaneous
  Country: US (occurrence: US)
  Receive Date: 20210924
  Receipt Date: 20210924
  Transmission Date: 20211014
  Serious: No
  Sender: FDA-Public Use
  Company Number: US-ALLERGAN-2039842US

PATIENT
  Sex: Female

DRUGS (2)
  1. SUCRALFATE TABLET [Suspect]
     Active Substance: SUCRALFATE
     Indication: CHRONIC GASTRITIS
     Dosage: UNK
     Route: 048
     Dates: start: 202009, end: 20201013
  2. PRILOSEC [Concomitant]
     Active Substance: OMEPRAZOLE MAGNESIUM
     Indication: DYSPEPSIA
     Dosage: UNK, QD

REACTIONS (4)
  - Illness [Not Recovered/Not Resolved]
  - Diarrhoea [Not Recovered/Not Resolved]
  - Abdominal pain upper [Not Recovered/Not Resolved]
  - Off label use [Unknown]

NARRATIVE: CASE EVENT DATE: 202009
